FAERS Safety Report 4951324-0 (Version None)
Quarter: 2006Q1

REPORT INFORMATION
  Report Type: 
  Country: None (occurrence: None)
  Receive Date: 20060317
  Receipt Date: 20060308
  Transmission Date: 20060701
  Serious: Yes (Death, Hospitalization)
  Sender: FDA-Public Use
  Company Number: IT200601003265

PATIENT
  Age: 50 Year
  Sex: Male

DRUGS (4)
  1. ALMITA(PEMETREXED) VIAL [Suspect]
     Indication: LUNG CARCINOMA CELL TYPE UNSPECIFIED RECURRENT
     Dosage: 500 MG/M2, OTHER,
     Dates: start: 20051201, end: 20060105
  2. FOLIC ACID [Concomitant]
  3. VITAMIN B12 [Concomitant]
  4. CORTICOSTEROIDS [Concomitant]

REACTIONS (5)
  - INTESTINAL PERFORATION [None]
  - LEUKOPENIA [None]
  - METABOLIC DISORDER [None]
  - POST PROCEDURAL COMPLICATION [None]
  - SHOCK [None]
